FAERS Safety Report 10611849 (Version 5)
Quarter: 2015Q2

REPORT INFORMATION
  Report Type: Report from Study
  Country: FR (occurrence: FR)
  Receive Date: 20141126
  Receipt Date: 20150619
  Transmission Date: 20150821
  Serious: Yes (Hospitalization)
  Sender: FDA-Public Use
  Company Number: FR-PFIZER INC-2014319204

PATIENT
  Age: 58 Year
  Sex: Male
  Weight: 69 kg

DRUGS (11)
  1. HYDROCHLOROTHIAZIDE/IRBESARTAN HYDROCHLORIDE [Concomitant]
     Indication: HYPERTENSION
     Dosage: UNK
  2. RITUXIMAB [Suspect]
     Active Substance: RITUXIMAB
     Indication: MANTLE CELL LYMPHOMA
     Dosage: UNK
     Dates: start: 20141106
  3. DEXAMETHASONE. [Suspect]
     Active Substance: DEXAMETHASONE
     Indication: MANTLE CELL LYMPHOMA
     Dosage: UNK
     Dates: start: 20141106
  4. ROSUVASTATIN [Concomitant]
     Active Substance: ROSUVASTATIN
     Indication: HYPERCHOLESTEROLAEMIA
     Dosage: UNK
  5. ACETYLSALICYLATE LYSINE [Concomitant]
     Active Substance: ASPIRIN DL-LYSINE
     Indication: PROPHYLAXIS
     Dosage: UNK
  6. TEMSIROLIMUS [Suspect]
     Active Substance: TEMSIROLIMUS
     Indication: MANTLE CELL LYMPHOMA
     Dosage: 15 MG, DAILY
     Dates: start: 20141107, end: 20141113
  7. VALACICLOVIR [Concomitant]
     Active Substance: VALACYCLOVIR HYDROCHLORIDE
     Indication: PROPHYLAXIS
     Dosage: UNK
     Dates: start: 20141106
  8. PHENOXYMETHYLPENICILLIN [Concomitant]
     Active Substance: PENICILLIN V
     Indication: PROPHYLAXIS
     Dosage: UNK
     Dates: start: 20141106
  9. ESOMEPRAZOLE [Concomitant]
     Active Substance: ESOMEPRAZOLE
     Indication: PROPHYLAXIS
     Dosage: UNK
     Dates: start: 20141106
  10. SULFAMETHOXAZOLE-TRIMETHOPRIM (SMZ) [Concomitant]
     Active Substance: SULFAMETHOXAZOLE\TRIMETHOPRIM
     Indication: PROPHYLAXIS
     Dosage: UNK
     Dates: start: 20141106
  11. CALCIUM FOLINATE [Concomitant]
     Active Substance: LEUCOVORIN CALCIUM
     Indication: PROPHYLAXIS
     Dosage: UNK
     Dates: start: 20141106

REACTIONS (2)
  - Laryngeal haemorrhage [Recovered/Resolved]
  - Laryngeal necrosis [Recovered/Resolved]

NARRATIVE: CASE EVENT DATE: 20141117
